FAERS Safety Report 5426570-2 (Version None)
Quarter: 2007Q3

REPORT INFORMATION
  Report Type: 
  Country: None (occurrence: None)
  Receive Date: 20070731
  Receipt Date: 20070404
  Transmission Date: 20080115
  Serious: No
  Sender: FDA-Public Use
  Company Number: 2006PV021289

PATIENT
  Age: 40 Year
  Sex: Male
  Weight: 79.4 kg

DRUGS (5)
  1. EXENATIDE(EXENATIDE) PEN,DISPOSABLE [Suspect]
     Indication: TYPE 2 DIABETES MELLITUS
     Dosage: SEE IMAGE
     Route: 058
     Dates: start: 20060101, end: 20060101
  2. EXENATIDE(EXENATIDE) PEN,DISPOSABLE [Suspect]
     Indication: TYPE 2 DIABETES MELLITUS
     Dosage: SEE IMAGE
     Route: 058
     Dates: start: 20060822
  3. EXENATIDE(EXENATIDE) PEN,DISPOSABLE [Suspect]
     Indication: TYPE 2 DIABETES MELLITUS
     Dosage: SEE IMAGE
     Route: 058
     Dates: start: 20070201
  4. METFORMIN HCL [Concomitant]
  5. AMARYL [Concomitant]

REACTIONS (16)
  - ALOPECIA [None]
  - CHAPPED LIPS [None]
  - DIZZINESS [None]
  - ERYTHEMA [None]
  - GINGIVAL PAIN [None]
  - HEADACHE [None]
  - HYPOTRICHOSIS [None]
  - LIP DRY [None]
  - MADAROSIS [None]
  - NAUSEA [None]
  - ORAL DISCOMFORT [None]
  - PAIN IN JAW [None]
  - PAIN OF SKIN [None]
  - RASH [None]
  - TOOTHACHE [None]
  - WEIGHT DECREASED [None]
